FAERS Safety Report 10078451 (Version 1)
Quarter: 2014Q2

REPORT INFORMATION
  Report Type: Spontaneous
  Country: JP (occurrence: None)
  Receive Date: 20140404
  Receipt Date: 20140404
  Transmission Date: 20141212
  Serious: Yes (Other)
  Sender: FDA-Public Use
  Company Number: SYM-2013-04440

PATIENT
  Age: 72 Year
  Sex: Male
  Weight: 61 kg

DRUGS (10)
  1. FLUOROURACIL [Suspect]
     Indication: RECTAL CANCER
     Route: 042
     Dates: start: 20070320, end: 20070321
  2. ELPLAT [Suspect]
     Indication: RECTAL CANCER
     Dosage: EVERY CYCLE INTRAVENOUS DRIP
     Route: 041
     Dates: start: 20070320, end: 20070320
  3. CALCIUM LEVOFOLINATE [Suspect]
     Indication: RECTAL CANCER
     Dates: start: 20070320, end: 20070320
  4. KYTRIL (GRANISETRON HYDROCHLORIDE) (GRANISETRON HYDROCHLORIDE) [Concomitant]
  5. DECADRON (DEXAMETHASONE) (DEXAMETHASONE) [Concomitant]
  6. BASEN (VOGLIBOSE) (VOGLIBOSE) [Concomitant]
  7. EUGLUCON (GLIBENCLAMIDE) (GLIBENCLAMIDE) [Concomitant]
  8. PREDONINE (PREDNISOLONE) (PREDNISOLONE) [Concomitant]
  9. METHYLPREDNISOLONE SODIUM SUCCINATE (METHYLPREDNISOLONE SODIUM SUCCINATE) [Concomitant]
  10. DAONIL (GLIBENCLAMIDE) (GLIBENCLAMIDE) [Concomitant]

REACTIONS (3)
  - Interstitial lung disease [None]
  - Neuropathy peripheral [None]
  - Activities of daily living impaired [None]
